FAERS Safety Report 8996215 (Version 2)
Quarter: 2013Q1

REPORT INFORMATION
  Report Type: Spontaneous
  Country: BR (occurrence: BR)
  Receive Date: 20130103
  Receipt Date: 20130124
  Transmission Date: 20140127
  Serious: Yes (Hospitalization, Disabling, Other)
  Sender: FDA-Public Use
  Company Number: BR-B.I. PHARMACEUTICALS,INC./RIDGEFIELD-2012-BR-01419BR

PATIENT
  Age: 78 None
  Sex: Female
  Weight: 83 kg

DRUGS (5)
  1. SPIRIVA RESPIMAT [Suspect]
     Indication: EMPHYSEMA
     Dosage: 25 MCG
     Route: 055
     Dates: start: 2002
  2. ALENIA [Concomitant]
     Indication: EMPHYSEMA
  3. ALL OTHER THERAPEUTIC PRODUCTS [Concomitant]
     Indication: HYPERTENSION
  4. ALPRAZOLAN [Concomitant]
     Indication: TREMOR
     Dates: start: 1996
  5. OMEGA 03 [Concomitant]
     Indication: MEMORY IMPAIRMENT

REACTIONS (12)
  - Pain in extremity [Not Recovered/Not Resolved]
  - Hypertensive crisis [Recovered/Resolved]
  - Weight increased [Not Recovered/Not Resolved]
  - Influenza [Not Recovered/Not Resolved]
  - Influenza [Recovered/Resolved]
  - Lung infection [Recovered/Resolved]
  - Fall [Recovered/Resolved]
  - Fall [Recovered/Resolved]
  - Local swelling [Recovered/Resolved]
  - Joint swelling [Recovered/Resolved]
  - Haematoma [Recovered/Resolved]
  - Head injury [Recovered/Resolved]
